FAERS Safety Report 12424310 (Version 1)
Quarter: 2016Q2

REPORT INFORMATION
  Report Type: Spontaneous
  Country: US (occurrence: US)
  Receive Date: 20160601
  Receipt Date: 20160601
  Transmission Date: 20160815
  Serious: No
  Sender: FDA-Public Use
  Company Number: US-NOVEN PHARMACEUTICALS, INC.-US2015001227

PATIENT
  Sex: Male
  Weight: 32.65 kg

DRUGS (1)
  1. DAYTRANA [Suspect]
     Active Substance: METHYLPHENIDATE
     Indication: ATTENTION DEFICIT/HYPERACTIVITY DISORDER
     Dosage: 20 MG, QD
     Route: 062
     Dates: start: 2013, end: 20151018

REACTIONS (3)
  - Application site pain [Unknown]
  - Drug effect delayed [Unknown]
  - Application site irritation [Unknown]

NARRATIVE: CASE EVENT DATE: 2013
